FAERS Safety Report 7434068-5 (Version None)
Quarter: 2011Q2

REPORT INFORMATION
  Report Type: 
  Country: None (occurrence: None)
  Receive Date: 20110425
  Receipt Date: 20110418
  Transmission Date: 20111010
  Serious: Yes (Other)
  Sender: FDA-Public Use
  Company Number: US-ASTELLAS-2011US001240

PATIENT

DRUGS (15)
  1. PROGRAF [Suspect]
     Indication: RENAL TRANSPLANT
     Dosage: UNK
     Route: 065
     Dates: start: 19991212
  2. POTASSIUM CHLORIDE [Concomitant]
     Indication: BLOOD POTASSIUM
     Dosage: 20 MEQ, UID/QD
     Route: 048
     Dates: start: 20110101
  3. ASPIRIN [Concomitant]
     Indication: ANTICOAGULANT THERAPY
     Dosage: 81 MG, UID/QD
     Route: 048
     Dates: start: 19991212
  4. MAGNESIUM [Concomitant]
     Indication: BLOOD MAGNESIUM DECREASED
     Dosage: 1000 MG AM, 500 MG PM
     Route: 048
     Dates: start: 19991212
  5. PRILOSEC [Concomitant]
     Indication: GASTRIC ULCER
     Dosage: 20.6 MG, UID/QD
     Route: 048
     Dates: start: 19991212
  6. PROGRAF [Suspect]
     Dosage: 2 MG, UID/QD
     Route: 048
  7. SIMVASTATIN [Concomitant]
     Indication: BLOOD CHOLESTEROL
     Dosage: 20 MG, UID/QD
     Route: 048
     Dates: start: 20000101
  8. PROGRAF [Suspect]
     Indication: PANCREAS TRANSPLANT
     Dosage: 1 MG BID, 0.5 MG UID/QD
     Route: 048
  9. TACROLIMUS [Suspect]
     Indication: RENAL TRANSPLANT
     Dosage: UNK
     Route: 065
     Dates: start: 20110101
  10. TACROLIMUS [Suspect]
     Indication: PANCREAS TRANSPLANT
  11. AMLODIPINE BESYLATE [Concomitant]
     Indication: BLOOD PRESSURE
     Dosage: 5 MG, UID/QD
     Route: 048
     Dates: start: 19970101
  12. RAPAMUNE [Concomitant]
     Indication: RENAL AND PANCREAS TRANSPLANT
     Dosage: 1 MG, UID/QD
     Route: 048
     Dates: start: 19991212
  13. GLYBURIDE [Concomitant]
     Indication: PANCREATIC DISORDER
     Dosage: 2.5 MG, BID
     Route: 048
     Dates: start: 20070101
  14. ZOCOR [Concomitant]
     Indication: RENAL AND PANCREAS TRANSPLANT
     Dosage: 400-80 MG, 3XWEEKLY
     Route: 065
     Dates: start: 19991212
  15. FUROSEMIDE [Concomitant]
     Indication: FLUID RETENTION
     Dosage: 40 MG, BID
     Route: 048
     Dates: start: 19970101

REACTIONS (9)
  - DRUG HYPERSENSITIVITY [None]
  - SKIN ULCER [None]
  - MENORRHAGIA [None]
  - DRUG INEFFECTIVE [None]
  - OFF LABEL USE [None]
  - KIDNEY TRANSPLANT REJECTION [None]
  - PANCREAS TRANSPLANT [None]
  - HYPERTENSION [None]
  - OEDEMA PERIPHERAL [None]
